FAERS Safety Report 12408082 (Version 1)
Quarter: 2016Q2

REPORT INFORMATION
  Report Type: Spontaneous
  Country: AU (occurrence: AU)
  Receive Date: 20160526
  Receipt Date: 20160526
  Transmission Date: 20160815
  Serious: Yes (Death, Other)
  Sender: FDA-Public Use
  Company Number: AU-IPCA LABORATORIES LIMITED-IPC201605-000470

PATIENT
  Age: 24 Year
  Sex: Female

DRUGS (9)
  1. PARACETAMOL [Suspect]
     Active Substance: ACETAMINOPHEN
  2. TOPIRAMATE. [Suspect]
     Active Substance: TOPIRAMATE
  3. NAPROXEN. [Suspect]
     Active Substance: NAPROXEN
  4. LAMOTRIGINE. [Suspect]
     Active Substance: LAMOTRIGINE
  5. METFORMIN HYDROCHLORIDE. [Suspect]
     Active Substance: METFORMIN HYDROCHLORIDE
  6. QUETIAPINE. [Suspect]
     Active Substance: QUETIAPINE
  7. IBUPROFEN. [Suspect]
     Active Substance: IBUPROFEN
  8. FLUOXETINE [Suspect]
     Active Substance: FLUOXETINE HYDROCHLORIDE
  9. DIAZEPAM. [Suspect]
     Active Substance: DIAZEPAM

REACTIONS (6)
  - Intentional overdose [Fatal]
  - Obstructive airways disorder [Fatal]
  - Bezoar [Fatal]
  - Aspiration [Fatal]
  - Completed suicide [Fatal]
  - Toxicity to various agents [Fatal]
